FAERS Safety Report 7248506 (Version 8)
Quarter: 2013Q2

REPORT INFORMATION
  Report Type: Report from Study
  Country: JP (occurrence: JP)
  Receive Date: 20100118
  Receipt Date: 20130503
  Transmission Date: 20140414
  Serious: Yes (Hospitalization, Other)
  Sender: FDA-Public Use
  Company Number: PHHO2010JP00822

PATIENT
  Age: 4 Year
  Sex: Male
  Weight: 13 kg

DRUGS (5)
  1. ACZ885 [Suspect]
     Indication: CRYOPYRIN ASSOCIATED PERIODIC SYNDROME
     Dosage: 26 MG, UNK
     Route: 058
     Dates: start: 20100106
  2. ACZ885 [Suspect]
     Dosage: 26.4 MG, UNK
     Route: 058
     Dates: start: 20100224
  3. NAIXAN [Concomitant]
     Indication: CHRONIC INFANTILE NEUROLOGICAL CUTANEOUS AND ARTICULAR SYNDROME
     Dosage: 480 MG, UNK
     Route: 048
     Dates: start: 20100802
  4. RHEUMATREX [Concomitant]
  5. FOLIAMIN [Concomitant]

REACTIONS (14)
  - Pneumonia streptococcal [Recovered/Resolved]
  - Nasal obstruction [Recovered/Resolved]
  - Pyrexia [Recovered/Resolved]
  - Decreased appetite [Recovered/Resolved]
  - Vomiting [Recovered/Resolved]
  - Hypoxia [Recovered/Resolved]
  - Disseminated intravascular coagulation [Recovered/Resolved]
  - Pulmonary oedema [Recovered/Resolved]
  - Pleural effusion [Recovered/Resolved]
  - Haemophilus infection [Recovered/Resolved]
  - Lung disorder [Recovered/Resolved]
  - Staphylococcal infection [Recovered/Resolved]
  - Anaemia [Recovering/Resolving]
  - Hypoalbuminaemia [Recovering/Resolving]
